FAERS Safety Report 5564548-9 (Version None)
Quarter: 2007Q4

REPORT INFORMATION
  Report Type: 
  Country: None (occurrence: None)
  Receive Date: 20071218
  Receipt Date: 20071211
  Transmission Date: 20080405
  Serious: Yes (Hospitalization)
  Sender: FDA-Public Use
  Company Number: PHBS2007IT20867

PATIENT
  Age: 56 Year
  Sex: Male

DRUGS (2)
  1. TEGRETOL [Suspect]
     Dosage: 1500 MG/DAY
  2. THEOREM [Suspect]

REACTIONS (1)
  - PLEURAL EFFUSION [None]
